FAERS Safety Report 20010375 (Version 2)
Quarter: 2022Q1

REPORT INFORMATION
  Report Type: Spontaneous
  Country: DE (occurrence: DE)
  Receive Date: 20211028
  Receipt Date: 20220214
  Transmission Date: 20220423
  Serious: Yes (Hospitalization)
  Sender: FDA-Public Use
  Company Number: DE-LEO PHARMA-339366

PATIENT
  Age: 39 Year
  Sex: Male
  Weight: 70 kg

DRUGS (2)
  1. BRODALUMAB [Suspect]
     Active Substance: BRODALUMAB
     Indication: Psoriasis
     Dosage: BI-WEEKLY FOR PSORIASIS
     Route: 058
     Dates: start: 20210324, end: 20210716
  2. BECLORHINOL [Concomitant]
     Indication: Conjunctivitis allergic
     Dosage: ONE STROKE / SPRAYING PUMP / ONCE DAILY / NASAL
     Route: 045
     Dates: start: 2012

REACTIONS (1)
  - Anaphylactic reaction [Recovered/Resolved]

NARRATIVE: CASE EVENT DATE: 20210716
